FAERS Safety Report 7738714-8 (Version None)
Quarter: 2011Q3

REPORT INFORMATION
  Report Type: 
  Country: None (occurrence: None)
  Receive Date: 20110908
  Receipt Date: 20110904
  Transmission Date: 20111222
  Serious: No
  Sender: FDA-Public Use
  Company Number: US-PFIZER INC-2011206165

PATIENT
  Sex: Female

DRUGS (3)
  1. DIOVAN [Suspect]
     Indication: BLOOD PRESSURE ABNORMAL
     Dosage: 80 MG, UNK
     Route: 048
  2. ALAVERT [Interacting]
     Indication: NASOPHARYNGITIS
     Dosage: 10 MG, UNK
     Route: 048
  3. ADVIL LIQUI-GELS [Interacting]
     Dosage: UNK

REACTIONS (3)
  - BLOOD PRESSURE INCREASED [None]
  - NERVOUSNESS [None]
  - DRUG INTERACTION [None]
